FAERS Safety Report 5705478-9 (Version None)
Quarter: 2008Q2

REPORT INFORMATION
  Report Type: 
  Country: None (occurrence: None)
  Receive Date: 20080411
  Receipt Date: 20080331
  Transmission Date: 20081010
  Serious: Yes (Hospitalization)
  Sender: FDA-Public Use
  Company Number: 100#08#2008-01771

PATIENT
  Age: 50 Year
  Sex: Male

DRUGS (6)
  1. PHENYTOIN [Suspect]
     Indication: DRUG USE FOR UNKNOWN INDICATION
     Dosage: 300 MG;
  2. OMEPRAZOLE [Suspect]
     Indication: DRUG USE FOR UNKNOWN INDICATION
  3. INSULIN (INSULIN) [Concomitant]
  4. VITAMIN B COMPLEX (VITAMIN B COMPLEX) [Concomitant]
  5. ATORVASTATIN CALCIUM [Concomitant]
  6. SPIRONOLACTONE [Concomitant]

REACTIONS (11)
  - ALCOHOL USE [None]
  - ANAEMIA MACROCYTIC [None]
  - CEREBELLAR SYNDROME [None]
  - DRUG INTERACTION [None]
  - DRUG TOXICITY [None]
  - DYSARTHRIA [None]
  - GRAND MAL CONVULSION [None]
  - LIVER FUNCTION TEST ABNORMAL [None]
  - NYSTAGMUS [None]
  - PROTHROMBIN TIME PROLONGED [None]
  - THROMBOCYTOPENIA [None]
